FAERS Safety Report 24638283 (Version 1)
Quarter: 2024Q4

REPORT INFORMATION
  Report Type: Spontaneous
  Country: US (occurrence: None)
  Receive Date: 20241119
  Receipt Date: 20241119
  Transmission Date: 20250115
  Serious: Yes (Life-Threatening)
  Sender: Public
  Company Number: None

PATIENT
  Age: 42 Year
  Sex: Male

DRUGS (1)
  1. INSULIN GLARGINE-YFGN [Suspect]
     Active Substance: INSULIN GLARGINE-YFGN
     Indication: Diabetes mellitus
     Dosage: FREQUENCY : DAILY;?
     Route: 058
     Dates: start: 20241001, end: 20241002

REACTIONS (5)
  - Hypoglycaemia [None]
  - Treatment noncompliance [None]
  - Infection masked [None]
  - Hypophagia [None]
  - Staphylococcal sepsis [None]

NARRATIVE: CASE EVENT DATE: 20241002
